FAERS Safety Report 8848435 (Version 1)
Quarter: 2012Q4

REPORT INFORMATION
  Report Type: 
  Country: US (occurrence: US)
  Receive Date: 20121019
  Receipt Date: 20121019
  Transmission Date: 20130627
  Serious: No
  Sender: FDA-Public Use
  Company Number: US-BIOGENIDEC-2012BI044082

PATIENT
  Age: 27 Year
  Sex: Male

DRUGS (4)
  1. TYSABRI [Suspect]
     Indication: MULTIPLE SCLEROSIS
     Route: 042
     Dates: start: 20120911
  2. HYDROCODONE [Concomitant]
     Indication: MYALGIA
     Dates: start: 2010
  3. FLEXERIL [Concomitant]
     Indication: MYALGIA
     Dates: start: 2010
  4. FLEXERIL [Concomitant]
     Indication: MUSCULOSKELETAL STIFFNESS
     Dates: start: 2010

REACTIONS (3)
  - Musculoskeletal stiffness [Recovered/Resolved]
  - Myalgia [Not Recovered/Not Resolved]
  - Fatigue [Not Recovered/Not Resolved]
